FAERS Safety Report 4384665-9 (Version None)
Quarter: 2004Q2

REPORT INFORMATION
  Report Type: 
  Country: None (occurrence: None)
  Receive Date: 20040621
  Receipt Date: 20031112
  Transmission Date: 20050107
  Serious: Yes (Other)
  Sender: FDA-Public Use
  Company Number: 2003115531

PATIENT
  Age: 35 Month
  Sex: Male
  Weight: 12.4 kg

DRUGS (5)
  1. EPANUTIN INFATABS (PHENYTOIN SODIUM) [Suspect]
     Indication: EPILEPSY
     Dosage: 100 MG (BID), ORAL
     Route: 048
     Dates: start: 20030930
  2. VALPROATE SODIUM [Concomitant]
  3. TOPIRAMATE [Concomitant]
  4. CLOBAZAM (CLOBAZAM) [Concomitant]
  5. RANITIDINE [Concomitant]

REACTIONS (5)
  - EYE ROLLING [None]
  - MEDICATION ERROR [None]
  - NYSTAGMUS [None]
  - PETIT MAL EPILEPSY [None]
  - RASH ERYTHEMATOUS [None]
